FAERS Safety Report 12779469 (Version 1)
Quarter: 2016Q3

REPORT INFORMATION
  Report Type: Spontaneous
  Country: US (occurrence: US)
  Receive Date: 20160922
  Receipt Date: 20160922
  Transmission Date: 20161109
  Serious: Yes (Life-Threatening, Hospitalization)
  Sender: FDA-Public Use
  Company Number: None

PATIENT
  Age: 73 Year
  Sex: Male
  Weight: 92 kg

DRUGS (1)
  1. CEPHALEXIN. [Suspect]
     Active Substance: CEPHALEXIN
     Indication: SURGERY
     Route: 048
     Dates: start: 20130611, end: 20130612

REACTIONS (8)
  - Diarrhoea haemorrhagic [None]
  - Hypovolaemia [None]
  - Acute kidney injury [None]
  - Septic shock [None]
  - Hypotension [None]
  - Tachycardia [None]
  - Vomiting [None]
  - Nausea [None]

NARRATIVE: CASE EVENT DATE: 20130612
